FAERS Safety Report 13823037 (Version 1)
Quarter: 2017Q3

REPORT INFORMATION
  Report Type: Spontaneous
  Country: FR (occurrence: FR)
  Receive Date: 20170801
  Receipt Date: 20170801
  Transmission Date: 20171127
  Serious: Yes (Other)
  Sender: FDA-Public Use
  Company Number: FR-BAYER-2017-145107

PATIENT
  Age: 29 Year
  Sex: Female

DRUGS (1)
  1. MIRENA [Suspect]
     Active Substance: LEVONORGESTREL
     Indication: CONTRACEPTION
     Dosage: 20 MCG/24HR, CONT
     Route: 015
     Dates: start: 20151001

REACTIONS (11)
  - Fatigue [Unknown]
  - Irritability [Unknown]
  - Arthralgia [Unknown]
  - Breast pain [Unknown]
  - Vaginal discharge [Unknown]
  - Hypoaesthesia [Unknown]
  - Anxiety [Unknown]
  - Depressive symptom [Unknown]
  - Alopecia [Unknown]
  - Memory impairment [Unknown]
  - Pruritus [Unknown]

NARRATIVE: CASE EVENT DATE: 2016
